FAERS Safety Report 21125537 (Version 2)
Quarter: 2022Q3

REPORT INFORMATION
  Report Type: Report from Study
  Country: US (occurrence: US)
  Receive Date: 20220725
  Receipt Date: 20220812
  Transmission Date: 20221026
  Serious: Yes (Hospitalization)
  Sender: FDA-Public Use
  Company Number: US-PFIZER INC-PV202200025548

PATIENT
  Age: 37 Year
  Sex: Male
  Weight: 81.6 kg

DRUGS (8)
  1. CETUXIMAB [Suspect]
     Active Substance: CETUXIMAB
     Indication: Colorectal cancer metastatic
     Dosage: 1030 MG, EVERY 2 WEEKS
     Route: 042
     Dates: start: 20220201
  2. ENCORAFENIB [Suspect]
     Active Substance: ENCORAFENIB
     Indication: Colorectal cancer metastatic
     Dosage: 300 MG, 1X/DAY
     Route: 048
     Dates: start: 20220201
  3. OXALIPLATIN [Suspect]
     Active Substance: OXALIPLATIN
     Indication: Colorectal cancer metastatic
     Dosage: 102 MG, EVERY 2 WEEKS
     Route: 042
     Dates: start: 20220201
  4. FLUOROURACIL [Suspect]
     Active Substance: FLUOROURACIL
     Indication: Colorectal cancer metastatic
     Dosage: DOSE FOR IV INFUSION 3915 MG, EVERY 2 WEEKS
     Route: 042
     Dates: start: 20220201
  5. LEUCOVORIN [Suspect]
     Active Substance: LEUCOVORIN
     Indication: Colorectal cancer metastatic
     Dosage: 816 MG, EVERY 2 WEEKS
     Route: 042
     Dates: start: 20220201
  6. BUSPIRONE [Concomitant]
     Active Substance: BUSPIRONE HYDROCHLORIDE
     Indication: Anxiety
     Dosage: 5 MG, 2X/DAY
     Route: 048
     Dates: start: 202111
  7. OXYCODONE [Concomitant]
     Active Substance: OXYCODONE
     Indication: Proctalgia
     Dosage: 18 MG, PRN
     Route: 048
     Dates: start: 20220126
  8. LORAZEPAM [Concomitant]
     Active Substance: LORAZEPAM
     Indication: Anxiety
     Dosage: 2 MG, NIGHTLY
     Route: 048
     Dates: start: 20220126

REACTIONS (1)
  - Pyrexia [Recovered/Resolved]

NARRATIVE: CASE EVENT DATE: 20220716
